FAERS Safety Report 7058650-2 (Version None)
Quarter: 2010Q4

REPORT INFORMATION
  Report Type: 
  Country: None (occurrence: None)
  Receive Date: 20101022
  Receipt Date: 20101008
  Transmission Date: 20110411
  Serious: Yes (Other)
  Sender: FDA-Public Use
  Company Number: PHHY2010CA69696

PATIENT
  Sex: Female

DRUGS (3)
  1. ACLASTA/ZOLEDRONATE T29581+A+ [Suspect]
     Indication: OSTEOPOROSIS
     Dosage: 5 MG/YEARLY
     Route: 042
     Dates: start: 20100312
  2. VITAMIN D [Concomitant]
     Dosage: 2000 IU, DAILY
     Dates: start: 20080101
  3. CALCIUM [Concomitant]
     Dosage: 1200 MG, DAILY
     Dates: start: 20080101

REACTIONS (2)
  - FALL [None]
  - UPPER LIMB FRACTURE [None]
